FAERS Safety Report 9187914 (Version 1)
Quarter: 2013Q1

REPORT INFORMATION
  Report Type: Spontaneous
  Country: US (occurrence: US)
  Receive Date: 20130325
  Receipt Date: 20130325
  Transmission Date: 20140127
  Serious: No
  Sender: FDA-Public Use
  Company Number: US-009507513-1303USA011108

PATIENT
  Sex: Male

DRUGS (2)
  1. SAPHRIS [Suspect]
     Indication: BIPOLAR I DISORDER
     Dosage: UNK
     Route: 048
     Dates: end: 201303
  2. WELLBUTRIN [Suspect]
     Indication: BIPOLAR I DISORDER

REACTIONS (5)
  - Muscular weakness [Unknown]
  - Dysphemia [Unknown]
  - Muscle spasms [Unknown]
  - Sleep disorder [Unknown]
  - Feeling abnormal [Unknown]
